FAERS Safety Report 12409196 (Version 1)
Quarter: 2016Q2

REPORT INFORMATION
  Report Type: Report from Study
  Country: DO (occurrence: DO)
  Receive Date: 20160526
  Receipt Date: 20160526
  Transmission Date: 20160815
  Serious: Yes (Other)
  Sender: FDA-Public Use
  Company Number: DO-ABBVIE-16P-279-1637652-00

PATIENT
  Age: 45 Year
  Sex: Male

DRUGS (5)
  1. CATAPRESAN [Concomitant]
     Active Substance: CLONIDINE
     Indication: HYPERTENSION
  2. SILDENAFIL CITRATE. [Concomitant]
     Active Substance: SILDENAFIL CITRATE
     Indication: LEFT VENTRICULAR DYSFUNCTION
  3. NIFEDIPINE. [Concomitant]
     Active Substance: NIFEDIPINE
     Indication: HYPERTENSION
  4. ATENOLOL. [Concomitant]
     Active Substance: ATENOLOL
     Indication: HYPERTENSION
     Route: 048
  5. ZEMPLAR [Suspect]
     Active Substance: PARICALCITOL
     Indication: BLOOD PARATHYROID HORMONE INCREASED
     Route: 042
     Dates: start: 20150520, end: 201602

REACTIONS (3)
  - Renal failure [Recovered/Resolved]
  - Renal disorder [Recovered/Resolved]
  - Kidney small [Recovered/Resolved]

NARRATIVE: CASE EVENT DATE: 201601
